FAERS Safety Report 19069972 (Version 14)
Quarter: 2022Q3

REPORT INFORMATION
  Report Type: Spontaneous
  Country: US (occurrence: US)
  Receive Date: 20210329
  Receipt Date: 20220928
  Transmission Date: 20221027
  Serious: Yes (Hospitalization, Other)
  Sender: FDA-Public Use
  Company Number: US-PFIZER INC-2021308628

PATIENT
  Age: 55 Year
  Sex: Female
  Weight: 65.77 kg

DRUGS (17)
  1. PRISTIQ EXTENDED-RELEASE [Suspect]
     Active Substance: DESVENLAFAXINE SUCCINATE
     Indication: Major depression
     Dosage: 25 MG, 1X/DAY
     Route: 048
     Dates: start: 202101
  2. PRISTIQ EXTENDED-RELEASE [Suspect]
     Active Substance: DESVENLAFAXINE SUCCINATE
     Indication: Post-traumatic punctate intraepidermal haemorrhage
     Dosage: 50 MG, 1X/DAY
     Dates: start: 202103
  3. PRISTIQ EXTENDED-RELEASE [Suspect]
     Active Substance: DESVENLAFAXINE SUCCINATE
     Dosage: 75 MG, 1X/DAY
     Route: 048
  4. PRISTIQ EXTENDED-RELEASE [Suspect]
     Active Substance: DESVENLAFAXINE SUCCINATE
     Dosage: 100 MG
  5. PRISTIQ EXTENDED-RELEASE [Suspect]
     Active Substance: DESVENLAFAXINE SUCCINATE
     Dosage: 50 MG, 1X/DAY (ONE TIME A DAY)
     Route: 048
  6. PRISTIQ EXTENDED-RELEASE [Suspect]
     Active Substance: DESVENLAFAXINE SUCCINATE
     Dosage: 75 MG, 1X/DAY (25MG ONE TIME A DAY WITH THE 50MG FOR A TOTAL OF 75 MG)
  7. NAPROXEN SODIUM [Suspect]
     Active Substance: NAPROXEN SODIUM
     Dosage: UNK
  8. ACETAMINOPHEN [Suspect]
     Active Substance: ACETAMINOPHEN
     Dosage: UNK
  9. PROZAC [Suspect]
     Active Substance: FLUOXETINE HYDROCHLORIDE
     Dosage: UNK
  10. BENZONATATE [Concomitant]
     Active Substance: BENZONATATE
     Indication: Cough
     Dosage: UNK
  11. CLONAZEPAM [Concomitant]
     Active Substance: CLONAZEPAM
     Dosage: 2 MG, 1X/DAY AT NIGHT
  12. TIZANIDINE [Concomitant]
     Active Substance: TIZANIDINE
     Indication: Bruxism
     Dosage: 2 MG
  13. OXYBUTYNIN [Concomitant]
     Active Substance: OXYBUTYNIN
     Dosage: 10 MG, 2X/DAY
  14. ACYCLOVIR [Concomitant]
     Active Substance: ACYCLOVIR
     Dosage: 400 MG
  15. WELLBUTRIN XL [Concomitant]
     Active Substance: BUPROPION HYDROCHLORIDE
     Dosage: UNK
  16. OMEPRAZOLE [Concomitant]
     Active Substance: OMEPRAZOLE
     Dosage: 40 MG, 1X/DAY
  17. NALTREXONE [Concomitant]
     Active Substance: NALTREXONE
     Dosage: 25 MG, 1X/DAY

REACTIONS (29)
  - Suicidal behaviour [Unknown]
  - Drug dependence [Unknown]
  - Suicidal ideation [Unknown]
  - Intentional product misuse [Unknown]
  - Product dispensing error [Unknown]
  - Drug ineffective [Recovered/Resolved]
  - Product prescribing error [Unknown]
  - Tension headache [Not Recovered/Not Resolved]
  - Constipation [Not Recovered/Not Resolved]
  - Fear [Unknown]
  - Emotional distress [Unknown]
  - Crying [Unknown]
  - Anger [Unknown]
  - Personality change [Unknown]
  - Insomnia [Not Recovered/Not Resolved]
  - Binge eating [Unknown]
  - Homicidal ideation [Unknown]
  - Feeling abnormal [Unknown]
  - Nightmare [Unknown]
  - Violence-related symptom [Unknown]
  - Weight increased [Unknown]
  - Fatigue [Unknown]
  - Mania [Unknown]
  - Abnormal behaviour [Unknown]
  - Headache [Unknown]
  - Aggression [Unknown]
  - Weight decreased [Unknown]
  - Withdrawal syndrome [Unknown]
  - Anxiety [Unknown]

NARRATIVE: CASE EVENT DATE: 20210101
